FAERS Safety Report 5842390-9 (Version None)
Quarter: 2008Q3

REPORT INFORMATION
  Report Type: 
  Country: None (occurrence: None)
  Receive Date: 20080812
  Receipt Date: 20080729
  Transmission Date: 20090109
  Serious: Yes (Hospitalization, Other)
  Sender: FDA-Public Use
  Company Number: US-BOEHRINGER INGELHEIM GMBH, GERMANY-2008-DE-04467GD

PATIENT
  Age: 10 Year
  Sex: Male

DRUGS (13)
  1. PREDNISONE TAB [Suspect]
     Indication: ASTHMA
     Route: 048
  2. PREDNISONE TAB [Suspect]
     Route: 048
  3. IPRATROPIUM BROMIDE [Suspect]
     Indication: ASTHMA
     Route: 055
  4. SERTRALINE [Suspect]
     Indication: MAJOR DEPRESSION
     Route: 048
  5. SERTRALINE [Suspect]
     Indication: ANXIETY
  6. METHYLPREDNISOLONE [Suspect]
     Indication: ASTHMA
     Dosage: 80 - 120 MG
     Route: 042
  7. BECLOMETHASONE DIPROPIONATE [Suspect]
     Indication: ASTHMA
     Route: 045
  8. DEXAMETHASONE [Suspect]
     Indication: ASTHMA
  9. THEOPHYLLINE [Suspect]
     Indication: ASTHMA
  10. ALBUTEROL [Concomitant]
     Indication: ASTHMA
  11. CROMOLYN SODIUM [Concomitant]
     Indication: ASTHMA
  12. SALMETEROL [Concomitant]
     Indication: ASTHMA
  13. CLARITHROMYCIN [Concomitant]
     Indication: ASTHMA

REACTIONS (13)
  - AGITATION [None]
  - ANXIETY [None]
  - ASTHENIA [None]
  - CUSHINGOID [None]
  - DEMENTIA [None]
  - DEPRESSION [None]
  - HALLUCINATION, AUDITORY [None]
  - HALLUCINATION, VISUAL [None]
  - INSOMNIA [None]
  - MAJOR DEPRESSION [None]
  - MYOPATHY [None]
  - NEUROTOXICITY [None]
  - NIGHTMARE [None]
